FAERS Safety Report 5019661-1 (Version None)
Quarter: 2006Q2

REPORT INFORMATION
  Report Type: 
  Country: None (occurrence: None)
  Receive Date: 20060601
  Receipt Date: 20060517
  Transmission Date: 20061013
  Serious: Yes (Hospitalization)
  Sender: FDA-Public Use
  Company Number: 2006PV013972

PATIENT
  Age: 53 Year
  Sex: Female
  Weight: 118.3888 kg

DRUGS (7)
  1. BYETTA [Suspect]
     Indication: DIABETES MELLITUS NON-INSULIN-DEPENDENT
     Dosage: 5 MCG;BID;SC
     Route: 058
     Dates: start: 20060426, end: 20060514
  2. AVANDIA [Concomitant]
  3. GLUCOPHAGE [Concomitant]
  4. CRESTOR [Concomitant]
  5. KLONOPIN [Concomitant]
  6. XANAX [Concomitant]
  7. THYROXINE [Concomitant]

REACTIONS (5)
  - DEHYDRATION [None]
  - ORTHOSTATIC HYPOTENSION [None]
  - PANCREATITIS ACUTE [None]
  - PNEUMONIA [None]
  - RENAL FAILURE ACUTE [None]
